FAERS Safety Report 4572892-7 (Version None)
Quarter: 2005Q1

REPORT INFORMATION
  Report Type: 
  Country: None (occurrence: None)
  Receive Date: 20050208
  Receipt Date: 20040625
  Transmission Date: 20050727
  Serious: No
  Sender: FDA-Public Use
  Company Number: US-GLAXOSMITHKLINE-A0518394A

PATIENT
  Sex: Male

DRUGS (7)
  1. PAXIL [Suspect]
     Indication: DRUG USE FOR UNKNOWN INDICATION
     Dates: start: 19980101
  2. COVERA-HS [Concomitant]
     Indication: HYPERTENSION
  3. UNIVASC [Concomitant]
     Indication: HYPERTENSION
  4. CELEBREX [Concomitant]
     Indication: DRUG USE FOR UNKNOWN INDICATION
  5. FLONASE [Concomitant]
     Indication: DRUG USE FOR UNKNOWN INDICATION
  6. ALLEGRA-D [Concomitant]
     Indication: DRUG USE FOR UNKNOWN INDICATION
  7. SEROQUEL [Concomitant]
     Indication: DEPRESSION

REACTIONS (1)
  - DRUG WITHDRAWAL SYNDROME [None]
